FAERS Safety Report 6400789-6 (Version None)
Quarter: 2009Q4

REPORT INFORMATION
  Report Type: 
  Country: None (occurrence: None)
  Receive Date: 20091008
  Receipt Date: 20090924
  Transmission Date: 20100525
  Serious: Yes (Hospitalization, Other)
  Sender: FDA-Public Use
  Company Number: 001893

PATIENT
  Age: 69 Year
  Sex: Female

DRUGS (10)
  1. CO-CODAMOL (CO-CODAMOL) [Suspect]
     Dosage: (30/500)
  2. FUROSEMIDE [Suspect]
     Dosage: (20 MG QD)
  3. CITALOPRAM HYDROBROMIDE [Suspect]
     Dosage: (20 MG QD)
  4. DICLOFENAC (DICLOFENAC) [Suspect]
     Dosage: (50 MG TID)
  5. DOMPERIDONE (DOMPERIDONE) [Suspect]
     Dosage: (10 MG TID)
  6. LOPERAMIDE (LOPERAMIDE) [Suspect]
     Dosage: (2 MG PRN)
  7. LOPRAZOLAM (LOPRAZOLAM) [Suspect]
     Dosage: (1 MG, 1 MG NOCTE)
  8. PROPRANOLOL [Suspect]
     Dosage: (80 MG BID)
  9. RISPERIDONE [Suspect]
     Dosage: (0.5 MG, NOCTE)
  10. ZOPICLONE (ZOPICLONE) [Suspect]
     Dosage: (7.5 MG, NOCTE)

REACTIONS (11)
  - CACHEXIA [None]
  - CARDIAC MURMUR [None]
  - CHOLELITHIASIS [None]
  - CLOSTRIDIUM DIFFICILE COLITIS [None]
  - COLON CANCER [None]
  - DECREASED APPETITE [None]
  - DEHYDRATION [None]
  - DEPRESSION [None]
  - DUODENAL ULCER [None]
  - LARGE INTESTINAL ULCER [None]
  - PALLOR [None]
